FAERS Safety Report 20562419 (Version 4)
Quarter: 2022Q3

REPORT INFORMATION
  Report Type: Spontaneous
  Country: US (occurrence: US)
  Receive Date: 20220307
  Receipt Date: 20220930
  Transmission Date: 20221027
  Serious: Yes (Hospitalization)
  Sender: FDA-Public Use
  Company Number: US-009507513-2203USA002016

PATIENT
  Sex: Female
  Weight: 63.5 kg

DRUGS (2)
  1. KEYTRUDA [Suspect]
     Active Substance: PEMBROLIZUMAB
     Indication: Renal cell carcinoma
     Dosage: ONE CYCLE OF KEYTRUDA 200 MILLIGRAMS
     Dates: start: 20211228
  2. LENVATINIB MESYLATE [Suspect]
     Active Substance: LENVATINIB MESYLATE
     Indication: Renal cell carcinoma
     Dosage: 10 MILLIGRAM, 1D
     Route: 048
     Dates: start: 20211123, end: 2021

REACTIONS (7)
  - Subcorneal pustular dermatosis [Recovering/Resolving]
  - Limb injury [Recovering/Resolving]
  - Oesophagitis [Unknown]
  - Dermatitis psoriasiform [Recovering/Resolving]
  - Telangiectasia [Unknown]
  - Dry mouth [Unknown]
  - Fatigue [Unknown]

NARRATIVE: CASE EVENT DATE: 20210101
